FAERS Safety Report 15855841 (Version 1)
Quarter: 2019Q1

REPORT INFORMATION
  Report Type: Spontaneous
  Country: FR (occurrence: FR)
  Receive Date: 20190122
  Receipt Date: 20190122
  Transmission Date: 20190417
  Serious: Yes (Hospitalization)
  Sender: FDA-Public Use
  Company Number: PHHY2019FR012864

PATIENT
  Age: 63 Year
  Sex: Male
  Weight: 68.9 kg

DRUGS (5)
  1. ELUDRIL [Concomitant]
     Indication: PRODUCT USED FOR UNKNOWN INDICATION
     Route: 065
  2. IBUPROFEN. [Suspect]
     Active Substance: IBUPROFEN
     Indication: OROPHARYNGEAL PAIN
     Route: 048
  3. SOLUPRED [PREDNISOLONE METASULFOBENZOATE SODIUM] [Suspect]
     Active Substance: PREDNISOLONE SODIUM METAZOATE
     Indication: TEMPOROMANDIBULAR JOINT SYNDROME
     Dosage: 1 ?G/L, QD
     Route: 048
     Dates: start: 20181203, end: 20181208
  4. AUGMENTIN [Concomitant]
     Active Substance: AMOXICILLIN\CLAVULANATE POTASSIUM
     Indication: TEMPOROMANDIBULAR JOINT SYNDROME
     Route: 065
  5. PAROEX [Concomitant]
     Active Substance: CHLORHEXIDINE GLUCONATE
     Indication: PRODUCT USED FOR UNKNOWN INDICATION
     Route: 065

REACTIONS (2)
  - Cellulitis [Recovered/Resolved]
  - Trismus [Recovered/Resolved]

NARRATIVE: CASE EVENT DATE: 20181213
